FAERS Safety Report 19959454 (Version 1)
Quarter: 2021Q4

REPORT INFORMATION
  Report Type: Spontaneous
  Country: US (occurrence: US)
  Receive Date: 20211013
  Receipt Date: 20211013
  Transmission Date: 20220303
  Serious: Yes (Hospitalization)
  Sender: FDA-Public Use
  Company Number: None

PATIENT
  Age: 72 Year
  Sex: Male

DRUGS (1)
  1. CLINDAMYCIN [Suspect]
     Active Substance: CLINDAMYCIN
     Dosage: ?          OTHER FREQUENCY:QID;
     Route: 048
     Dates: start: 20210703, end: 20210714

REACTIONS (6)
  - Swelling [None]
  - Rash [None]
  - Erythema [None]
  - Cellulitis [None]
  - Peripheral swelling [None]
  - Sleep disorder [None]

NARRATIVE: CASE EVENT DATE: 20210717
